FAERS Safety Report 8822188 (Version 7)
Quarter: 2014Q2

REPORT INFORMATION
  Report Type: Spontaneous
  Country: US (occurrence: US)
  Receive Date: 20121003
  Receipt Date: 20140415
  Transmission Date: 20141212
  Serious: Yes (Hospitalization, Disabling, Other)
  Sender: FDA-Public Use
  Company Number: US-009507513-1209USA000903

PATIENT
  Sex: Female
  Weight: 117.91 kg

DRUGS (3)
  1. FOSAMAX [Suspect]
     Indication: OSTEOPOROSIS
     Dosage: 35 MG, QW
     Route: 048
  2. FOSAMAX [Suspect]
     Dosage: 70 MG, QW
     Route: 048
  3. FOSAMAX [Suspect]
     Indication: OSTEOPOROSIS
     Route: 048

REACTIONS (43)
  - Femur fracture [Unknown]
  - Intramedullary rod insertion [Unknown]
  - Fracture nonunion [Recovered/Resolved]
  - Medical device complication [Unknown]
  - Removal of internal fixation [Unknown]
  - Internal fixation of fracture [Unknown]
  - Bone graft [Unknown]
  - Femur fracture [Recovered/Resolved]
  - Renal failure [Unknown]
  - Bone disorder [Unknown]
  - Type 2 diabetes mellitus [Unknown]
  - Hypertension [Unknown]
  - Cardiac failure congestive [Unknown]
  - Chronic obstructive pulmonary disease [Not Recovered/Not Resolved]
  - Sleep apnoea syndrome [Unknown]
  - Arrhythmia [Recovered/Resolved]
  - Cardiac murmur [Unknown]
  - Left ventricular hypertrophy [Unknown]
  - Electrocardiogram QRS complex prolonged [Unknown]
  - Bronchitis [Unknown]
  - Hyperlipidaemia [Unknown]
  - Depression [Unknown]
  - Anaemia postoperative [Unknown]
  - Neuropathy peripheral [Unknown]
  - Emphysema [Unknown]
  - Osteoarthritis [Unknown]
  - Diabetes mellitus inadequate control [Unknown]
  - Hypothyroidism [Unknown]
  - Irritable bowel syndrome [Unknown]
  - Mitral valve incompetence [Unknown]
  - Intertrigo [Unknown]
  - Tricuspid valve incompetence [Unknown]
  - Osteopenia [Not Recovered/Not Resolved]
  - Normochromic normocytic anaemia [Unknown]
  - Joint effusion [Unknown]
  - Loose body in joint [Unknown]
  - Dysuria [Unknown]
  - Palpitations [Unknown]
  - Pain in extremity [Unknown]
  - Vomiting [Unknown]
  - Back pain [Unknown]
  - Gastrooesophageal reflux disease [Unknown]
  - Nausea [Unknown]
